FAERS Safety Report 5751670-7 (Version None)
Quarter: 2008Q2

REPORT INFORMATION
  Report Type: 
  Country: None (occurrence: None)
  Receive Date: 20080528
  Receipt Date: 20080521
  Transmission Date: 20081010
  Serious: Yes (Hospitalization)
  Sender: FDA-Public Use
  Company Number: PHEH2008US04793

PATIENT
  Sex: Female
  Weight: 35 kg

DRUGS (1)
  1. RECLAST [Suspect]
     Indication: OSTEOPOROSIS
     Dosage: 5 MG, ONCE/SINGLE
     Dates: start: 20080311

REACTIONS (4)
  - BACK PAIN [None]
  - BONE PAIN [None]
  - CHEST PAIN [None]
  - MUSCULOSKELETAL PAIN [None]
